FAERS Safety Report 6534100-7 (Version None)
Quarter: 2010Q1

REPORT INFORMATION
  Report Type: 
  Country: None (occurrence: None)
  Receive Date: 20100112
  Receipt Date: 20100101
  Transmission Date: 20100710
  Serious: Yes (Hospitalization, Other)
  Sender: FDA-Public Use
  Company Number: PHHO2010JP00466

PATIENT
  Sex: Male
  Weight: 70 kg

DRUGS (12)
  1. EXELON [Suspect]
     Indication: DEMENTIA ALZHEIMER'S TYPE
     Dosage: 4.5 MG, QD
     Route: 062
     Dates: start: 20090221, end: 20090324
  2. EXELON [Suspect]
     Dosage: 9 MG, QD
     Route: 062
     Dates: start: 20090325, end: 20090421
  3. EXELON [Suspect]
     Dosage: 13.5 MG, QD
     Route: 062
     Dates: start: 20090422
  4. EXELON [Suspect]
     Dosage: 18 MG, QD
     Route: 062
     Dates: start: 20090513
  5. RESTAMIN [Concomitant]
     Indication: XERODERMA
  6. MOHRUS [Concomitant]
     Indication: OSTEOARTHRITIS
  7. PROPADERM [Concomitant]
     Indication: BODY TINEA
  8. ZINC OXIDE [Concomitant]
     Indication: BODY TINEA
  9. PETROLATUM SALICYLICUM [Concomitant]
     Indication: BODY TINEA
  10. AZUNOL #1 [Concomitant]
     Indication: BODY TINEA
  11. HIRUDOID /OLD FORM/ [Concomitant]
     Indication: XERODERMA
  12. MAGNESIUM OXIDE [Concomitant]
     Indication: CONSTIPATION

REACTIONS (5)
  - ASTHMA [None]
  - DYSPNOEA [None]
  - OXYGEN SATURATION DECREASED [None]
  - WHEEZING [None]
  - WHITE BLOOD CELL COUNT INCREASED [None]
